FAERS Safety Report 7423822-1 (Version None)
Quarter: 2011Q2

REPORT INFORMATION
  Report Type: 
  Country: None (occurrence: None)
  Receive Date: 20110419
  Receipt Date: 20110406
  Transmission Date: 20111010
  Serious: Yes (Other)
  Sender: FDA-Public Use
  Company Number: PHHY2011AU29703

PATIENT
  Sex: Female

DRUGS (1)
  1. ACLASTA [Suspect]
     Dosage: 5 MG, UNK
     Route: 042
     Dates: start: 20110404

REACTIONS (5)
  - MONOPLEGIA [None]
  - MOVEMENT DISORDER [None]
  - EYE SWELLING [None]
  - BEDRIDDEN [None]
  - PYREXIA [None]
